FAERS Safety Report 9123752 (Version 2)
Quarter: 2013Q4

REPORT INFORMATION
  Report Type: Spontaneous
  Country: US (occurrence: US)
  Receive Date: 20130116
  Receipt Date: 20131023
  Transmission Date: 20140711
  Serious: Yes (Hospitalization)
  Sender: FDA-Public Use
  Company Number: US-BAYER-2013-004505

PATIENT
  Age: 23 Year
  Sex: Female

DRUGS (9)
  1. YAZ [Suspect]
     Indication: CONTRACEPTION
  2. TOPAMAX [Concomitant]
     Dosage: 50 MG, UNK
     Route: 048
  3. MAXALT [Concomitant]
     Dosage: 10 MG, UNK
     Route: 048
  4. FLUOXETINE [Concomitant]
     Dosage: 20 MG, UNK
     Route: 048
  5. XYZAL [Concomitant]
     Dosage: 5 MG, UNK
     Route: 048
  6. LORAZEPAM [Concomitant]
     Dosage: 0.5 MG, UNK
     Route: 048
  7. PROZAC [Concomitant]
  8. DOCUSATE SODIUM\SENNOSIDES [Concomitant]
  9. ACETAMINOPHEN W/OXYCODONE [Concomitant]

REACTIONS (2)
  - Deep vein thrombosis [Recovered/Resolved]
  - Pulmonary embolism [Recovered/Resolved]
